FAERS Safety Report 13165248 (Version 1)
Quarter: 2017Q1

REPORT INFORMATION
  Report Type: Spontaneous
  Country: DE (occurrence: DE)
  Receive Date: 20170131
  Receipt Date: 20170131
  Transmission Date: 20170428
  Serious: Yes (Life-Threatening, Hospitalization)
  Sender: FDA-Public Use
  Company Number: DE-009507513-1701DEU011377

PATIENT
  Age: 36 Year
  Sex: Female
  Weight: 66 kg

DRUGS (4)
  1. APIDRA [Suspect]
     Active Substance: INSULIN GLULISINE
     Dosage: 8 IU (INTERNATIONAL UNIT(S)), 1 IN 1 DAY, , STRENGTH WAS REPORTED AS 100 E/ML
     Route: 058
     Dates: start: 201512
  2. LEVEMIR [Suspect]
     Active Substance: INSULIN DETEMIR
     Dosage: 10 IU (INTERNATIONAL UNIT(S)), 1 IN 1 DAY
     Route: 058
     Dates: start: 201604
  3. RAMIPRIL. [Concomitant]
     Active Substance: RAMIPRIL
     Dosage: 2.5 MG (MILLGRAM(S)), EVERY DAYS
     Route: 048
     Dates: start: 201302
  4. VELMETIA [Suspect]
     Active Substance: METFORMIN\SITAGLIPTIN
     Dosage: 2 DF (DOSAGE FORM) EVERY DAYS
     Route: 048
     Dates: start: 201206

REACTIONS (2)
  - Pleural effusion [Recovering/Resolving]
  - Pancreatitis [Recovering/Resolving]

NARRATIVE: CASE EVENT DATE: 20161219
